FAERS Safety Report 8619108-X (Version None)
Quarter: 2012Q3

REPORT INFORMATION
  Report Type: 
  Country: None (occurrence: None)
  Receive Date: 20120824
  Receipt Date: 20120822
  Transmission Date: 20120928
  Serious: Yes (Hospitalization)
  Sender: FDA-Public Use
  Company Number: PHHY2012TW064643

PATIENT
  Sex: Female

DRUGS (1)
  1. ZOLEDRONOC ACID [Suspect]
     Dosage: UNK
     Route: 042
     Dates: start: 20120720

REACTIONS (8)
  - CHEST PAIN [None]
  - PYREXIA [None]
  - MUSCULAR WEAKNESS [None]
  - VOMITING [None]
  - PAIN [None]
  - HEART RATE INCREASED [None]
  - DIZZINESS [None]
  - BLOOD PRESSURE DECREASED [None]
